FAERS Safety Report 5827905-9 (Version None)
Quarter: 2008Q3

REPORT INFORMATION
  Report Type: 
  Country: None (occurrence: None)
  Receive Date: 20080730
  Receipt Date: 20080718
  Transmission Date: 20090109
  Serious: Yes (Hospitalization)
  Sender: FDA-Public Use
  Company Number: US-PFIZER INC-2008060603

PATIENT
  Sex: Female

DRUGS (2)
  1. LYRICA [Suspect]
  2. TRAMADOL HCL [Concomitant]

REACTIONS (1)
  - CREATININE RENAL CLEARANCE DECREASED [None]
